FAERS Safety Report 13492806 (Version 3)
Quarter: 2017Q2

REPORT INFORMATION
  Report Type: Spontaneous
  Country: US (occurrence: US)
  Receive Date: 20170427
  Receipt Date: 20170505
  Transmission Date: 20170830
  Serious: Yes (Hospitalization)
  Sender: FDA-Public Use
  Company Number: US-JNJFOC-20170423596

PATIENT
  Sex: Male
  Weight: 99.79 kg

DRUGS (1)
  1. INVEGA TRINZA [Suspect]
     Active Substance: PALIPERIDONE PALMITATE
     Indication: SCHIZOPHRENIA
     Route: 030
     Dates: start: 201607, end: 2016

REACTIONS (6)
  - Weight increased [Not Recovered/Not Resolved]
  - Disturbance in social behaviour [Unknown]
  - Therapy cessation [Unknown]
  - Hospitalisation [Unknown]
  - Psychotic disorder [Unknown]
  - Aggression [Unknown]

NARRATIVE: CASE EVENT DATE: 2016
